FAERS Safety Report 19124302 (Version 1)
Quarter: 2021Q2

REPORT INFORMATION
  Report Type: Spontaneous
  Country: US (occurrence: US)
  Receive Date: 20210412
  Receipt Date: 20210412
  Transmission Date: 20210717
  Serious: No
  Sender: FDA-Public Use
  Company Number: US-VERTEX PHARMACEUTICALS-2021-005625

PATIENT
  Age: 36 Year
  Sex: Female
  Weight: 68 kg

DRUGS (5)
  1. INVEGA [Interacting]
     Active Substance: PALIPERIDONE
     Dosage: 3 MG DAILY
     Route: 065
     Dates: start: 20210225
  2. INVEGA [Interacting]
     Active Substance: PALIPERIDONE
     Indication: PRODUCT USED FOR UNKNOWN INDICATION
     Dosage: 7.5 MG
     Route: 065
  3. TRIKAFTA [Suspect]
     Active Substance: ELEXACAFTOR\IVACAFTOR\TEZACAFTOR
     Indication: CYSTIC FIBROSIS
     Dosage: 2 TABS (100MG ELEXA/50MG TEZA/75MG IVA) AM; 1 TAB (150MG IVA)PM
     Route: 048
     Dates: start: 201911
  4. INVEGA [Interacting]
     Active Substance: PALIPERIDONE
     Dosage: 1.5 MG DAILY FOR 2 WEEKS
     Route: 065
     Dates: start: 20210302, end: 20210315
  5. LEVOTHYROXINE. [Concomitant]
     Active Substance: LEVOTHYROXINE

REACTIONS (8)
  - Bedridden [Unknown]
  - Arthralgia [Recovering/Resolving]
  - Muscular weakness [Unknown]
  - Myalgia [Recovering/Resolving]
  - Gait inability [Unknown]
  - Muscle twitching [Unknown]
  - Drug interaction [Unknown]
  - Muscle spasms [Recovering/Resolving]

NARRATIVE: CASE EVENT DATE: 2021
